FAERS Safety Report 10040462 (Version 1)
Quarter: 2014Q1

REPORT INFORMATION
  Report Type: Spontaneous
  Country: US (occurrence: US)
  Receive Date: 20140327
  Receipt Date: 20140327
  Transmission Date: 20141002
  Serious: No
  Sender: FDA-Public Use
  Company Number: US-B.I. PHARMACEUTICALS,INC./RIDGEFIELD-2014-BI-12492BP

PATIENT
  Age: 74 Year
  Sex: Female

DRUGS (8)
  1. PRADAXA [Suspect]
     Indication: ATRIAL FIBRILLATION
     Dosage: 300 MG
     Route: 048
     Dates: start: 20140312, end: 20140319
  2. OMEPRAZOLE [Concomitant]
     Indication: GASTRITIS
     Dosage: 40 MG
     Route: 048
  3. ATENOLOL [Concomitant]
     Indication: HYPERTENSION
     Dosage: 25 MG
     Route: 048
  4. LOVASTATIN [Concomitant]
     Indication: BLOOD CHOLESTEROL INCREASED
     Dosage: 20 MG
     Route: 048
  5. VITAMIN D [Concomitant]
     Indication: VITAMIN SUPPLEMENTATION
     Route: 065
  6. FISH OIL [Concomitant]
     Indication: SUPPLEMENTATION THERAPY
     Route: 048
  7. VITAMIN C [Concomitant]
     Indication: VITAMIN SUPPLEMENTATION
     Route: 048
  8. CALCIUM [Concomitant]
     Indication: SUPPLEMENTATION THERAPY
     Route: 048

REACTIONS (3)
  - Dyspepsia [Not Recovered/Not Resolved]
  - Throat irritation [Not Recovered/Not Resolved]
  - Odynophagia [Not Recovered/Not Resolved]
